FAERS Safety Report 12582672 (Version 2)
Quarter: 2016Q3

REPORT INFORMATION
  Report Type: Spontaneous
  Country: HU (occurrence: HU)
  Receive Date: 20160722
  Receipt Date: 20160928
  Transmission Date: 20161109
  Serious: Yes (Other)
  Sender: FDA-Public Use
  Company Number: HU-TEVA-678430ISR

PATIENT
  Age: 33 Year
  Sex: Female

DRUGS (4)
  1. CLARITHROMYCIN. [Suspect]
     Active Substance: CLARITHROMYCIN
     Indication: DYSPNOEA
  2. AMOXICILLIN. [Suspect]
     Active Substance: AMOXICILLIN
     Indication: DYSPNOEA
  3. AMOXICILLIN. [Suspect]
     Active Substance: AMOXICILLIN
     Indication: PNEUMONIA
  4. CLARITHROMYCIN. [Suspect]
     Active Substance: CLARITHROMYCIN
     Indication: PNEUMONIA

REACTIONS (4)
  - Exposure during pregnancy [Unknown]
  - Normal newborn [Unknown]
  - Pleurisy [Unknown]
  - Premature labour [Unknown]
